FAERS Safety Report 7251527-9 (Version None)
Quarter: 2011Q1

REPORT INFORMATION
  Report Type: 
  Country: None (occurrence: None)
  Receive Date: 20110128
  Receipt Date: 20110114
  Transmission Date: 20110831
  Serious: Yes (Hospitalization)
  Sender: FDA-Public Use
  Company Number: US-ELI_LILLY_AND_COMPANY-US201005000839

PATIENT
  Sex: Female
  Weight: 51.701 kg

DRUGS (12)
  1. LOTREL [Concomitant]
  2. FORTEO [Suspect]
     Indication: OSTEOPOROSIS
     Dosage: 20 UG, DAILY (1/D)
     Route: 058
     Dates: start: 20091023
  3. LOTRIL                             /00574902/ [Concomitant]
     Dosage: UNK, UNKNOWN
     Route: 065
  4. PREDNISONE [Concomitant]
     Dosage: UNK, UNKNOWN
     Route: 065
  5. CALCIUM+VIT D /00944201/ [Concomitant]
  6. FORTEO [Suspect]
     Dosage: 20 UG, DAILY (1/D)
  7. CLONIDINE [Concomitant]
     Dosage: UNK, UNKNOWN
     Route: 065
  8. FLOVENT [Concomitant]
  9. HYDROCHLOROTHIAZIDE [Concomitant]
  10. FORTEO [Suspect]
     Dosage: 20 UG, DAILY (1/D)
  11. AVELOX [Concomitant]
     Dosage: UNK, UNKNOWN
     Route: 065
  12. COMBIVENT [Concomitant]

REACTIONS (4)
  - MUSCLE SPASMS [None]
  - EMPHYSEMA [None]
  - RETCHING [None]
  - NAUSEA [None]
